FAERS Safety Report 9556689 (Version 1)
Quarter: 2013Q3

REPORT INFORMATION
  Report Type: Spontaneous
  Country: US (occurrence: None)
  Receive Date: 20130724
  Receipt Date: 20130724
  Transmission Date: 20140515
  Serious: No
  Sender: FDA-Public Use
  Company Number: PHEH2013US006798

PATIENT
  Age: 39 Year
  Sex: Female
  Weight: 74.8 kg

DRUGS (1)
  1. GILENYA (FINGOLIMOD) CAPSULE, 0.5MG [Suspect]
     Indication: MULTIPLE SCLEROSIS
     Dosage: 0.5 MG, QD, ORAL
     Route: 048
     Dates: start: 20110803

REACTIONS (6)
  - Menstrual disorder [None]
  - Premature menopause [None]
  - Weight increased [None]
  - Fatigue [None]
  - Heart rate increased [None]
  - Palpitations [None]
